FAERS Safety Report 16642106 (Version 1)
Quarter: 2019Q3

REPORT INFORMATION
  Report Type: Spontaneous
  Country: US (occurrence: US)
  Receive Date: 20190727
  Receipt Date: 20190727
  Transmission Date: 20191004
  Serious: No
  Sender: FDA-Public Use
  Company Number: None

PATIENT
  Age: 44 Year
  Sex: Female
  Weight: 81 kg

DRUGS (9)
  1. BACLOFEN. [Concomitant]
     Active Substance: BACLOFEN
  2. AMITRIPTILINE [Concomitant]
  3. BUSPIRONE [Concomitant]
     Active Substance: BUSPIRONE HYDROCHLORIDE
  4. SPIRONOLACTONE. [Concomitant]
     Active Substance: SPIRONOLACTONE
  5. TOPIRIMATE [Concomitant]
     Active Substance: TOPIRAMATE
  6. OXYCODONE/ACETAMINOPHEN 10-325MG TB [Concomitant]
     Active Substance: ACETAMINOPHEN\OXYCODONE HYDROCHLORIDE
     Indication: SPONDYLOLISTHESIS
     Dosage: ?          QUANTITY:120 TABLET(S);?
     Route: 048
     Dates: start: 20190723, end: 20190727
  7. GABAPENTIN. [Concomitant]
     Active Substance: GABAPENTIN
  8. DOXEPINE [Concomitant]
     Active Substance: DOXEPIN
  9. LEVOTHYROXINE. [Concomitant]
     Active Substance: LEVOTHYROXINE

REACTIONS (1)
  - Drug ineffective [None]

NARRATIVE: CASE EVENT DATE: 20190724
